FAERS Safety Report 7968827-7 (Version None)
Quarter: 2011Q4

REPORT INFORMATION
  Report Type: 
  Country: None (occurrence: None)
  Receive Date: 20111209
  Receipt Date: 20111202
  Transmission Date: 20120403
  Serious: Yes (Hospitalization, Other)
  Sender: FDA-Public Use
  Company Number: JP-CEPHALON-2010006593

PATIENT
  Sex: Female
  Weight: 41 kg

DRUGS (15)
  1. SUCRALFATE [Concomitant]
  2. BENDAMUSTINE HCL [Suspect]
     Route: 042
     Dates: start: 20110331, end: 20110401
  3. BENDAMUSTINE HCL [Suspect]
     Route: 042
     Dates: start: 20110512
  4. CEFEPIME HYDROCHLORIDE [Concomitant]
  5. MEROPENEM [Concomitant]
     Dates: start: 20101223, end: 20110111
  6. FLUCONAZOLE [Concomitant]
  7. PREDNISOLONE [Concomitant]
  8. SODIUM ALGINATE [Concomitant]
  9. MAGNESIUM OXIDE [Concomitant]
  10. NAPROXEN [Concomitant]
     Dates: start: 20110108, end: 20110125
  11. SULFAMETHOXAZOLE AND TRIMETHOPRIM [Concomitant]
     Dates: start: 20101214
  12. BENDAMUSTINE HCL [Suspect]
     Indication: MANTLE CELL LYMPHOMA
     Route: 042
     Dates: start: 20101214, end: 20101215
  13. ALLOPURINOL [Concomitant]
  14. GRANISETRON HCL [Concomitant]
  15. LANSOPRAZOLE [Concomitant]

REACTIONS (9)
  - BONE MARROW FAILURE [None]
  - LYMPHOCYTE COUNT DECREASED [None]
  - NEUTROPENIA [None]
  - STOMATITIS [None]
  - FEBRILE NEUTROPENIA [None]
  - NEUTROPHIL COUNT DECREASED [None]
  - COUGH [None]
  - PLATELET COUNT DECREASED [None]
  - PYREXIA [None]
